FAERS Safety Report 4466637-9 (Version None)
Quarter: 2004Q4

REPORT INFORMATION
  Report Type: 
  Country: None (occurrence: None)
  Receive Date: 20041001
  Receipt Date: 20041001
  Transmission Date: 20050328
  Serious: Yes (Other)
  Sender: FDA-Public Use
  Company Number: None

PATIENT
  Age: 48 Year
  Sex: Female
  Weight: 56.6996 kg

DRUGS (2)
  1. EFFEXOR XR [Suspect]
     Indication: AFFECTIVE DISORDER
     Dosage: 1 DAILY ORAL
     Route: 048
     Dates: start: 20030601, end: 20040601
  2. EFFEXOR XR [Suspect]
     Indication: HYPERHIDROSIS
     Dosage: 1 DAILY ORAL
     Route: 048
     Dates: start: 20030601, end: 20040601

REACTIONS (2)
  - NERVOUS SYSTEM DISORDER [None]
  - VERTIGO [None]
